FAERS Safety Report 23232680 (Version 2)
Quarter: 2024Q3

REPORT INFORMATION
  Report Type: Spontaneous
  Country: US (occurrence: US)
  Receive Date: 20231128
  Receipt Date: 20240911
  Transmission Date: 20241017
  Serious: No
  Sender: ADARE PHARMACEUTICALS
  Company Number: US-ADAREPHARM-2023-US-000067

PATIENT
  Age: 41 Year
  Sex: Female

DRUGS (4)
  1. KCL [Suspect]
     Active Substance: POTASSIUM CHLORIDE
     Indication: Hypokalaemia
     Dosage: 3 DOSES OF ORAL 40 MEQ POTASSIUM CHLORIDE
     Route: 048
  2. LABETALOL [Concomitant]
     Active Substance: LABETALOL\LABETALOL HYDROCHLORIDE
  3. Nefedipine ER [Concomitant]
  4. INSULIN NOS [Concomitant]
     Active Substance: INSULIN NOS
     Dosage: SHE WAS ON A TOTAL OF 220 UNITS OF INSULIN?DAILY

REACTIONS (2)
  - Maternal exposure during pregnancy [Recovered/Resolved]
  - No adverse event [Recovered/Resolved]
